FAERS Safety Report 18958039 (Version 1)
Quarter: 2021Q1

REPORT INFORMATION
  Report Type: Spontaneous
  Country: US (occurrence: US)
  Receive Date: 20210302
  Receipt Date: 20210302
  Transmission Date: 20210420
  Serious: Yes (Hospitalization)
  Sender: FDA-Public Use
  Company Number: None

PATIENT
  Age: 57 Year
  Sex: Male
  Weight: 90.7 kg

DRUGS (9)
  1. VITAMIN D3 [Concomitant]
     Active Substance: CHOLECALCIFEROL
  2. TESTOSTERONE. [Concomitant]
     Active Substance: TESTOSTERONE
  3. CALCIUM, [Concomitant]
  4. MULTIVITAMIN [Concomitant]
     Active Substance: VITAMINS
  5. SILDENAFIL. [Concomitant]
     Active Substance: SILDENAFIL
  6. KRILL [Concomitant]
  7. ENTYVIO [Suspect]
     Active Substance: VEDOLIZUMAB
  8. ENTYVIO [Concomitant]
     Active Substance: VEDOLIZUMAB
  9. HM ZINC [Concomitant]

REACTIONS (5)
  - Vomiting [None]
  - Small intestinal obstruction [None]
  - Night sweats [None]
  - Intestinal stenosis [None]
  - Abscess [None]

NARRATIVE: CASE EVENT DATE: 20190124
